FAERS Safety Report 10231296 (Version 1)
Quarter: 2014Q2

REPORT INFORMATION
  Report Type: Report from Study
  Country: US (occurrence: US)
  Receive Date: 20140611
  Receipt Date: 20140611
  Transmission Date: 20141212
  Serious: Yes (Other)
  Sender: FDA-Public Use
  Company Number: PHEH2014US011664

PATIENT
  Age: 15 Year
  Sex: Male

DRUGS (9)
  1. TOBI [Suspect]
     Indication: CYSTIC FIBROSIS
     Dosage: 1 DF, BID
     Route: 055
     Dates: end: 201309
  2. AZITHROMYCIN [Concomitant]
     Dosage: UNK UKN, UNK
  3. OMEPRAZOL ^ACYFABRIK^ [Concomitant]
     Dosage: UNK UKN, UNK
  4. CERON [Concomitant]
     Dosage: UNK UKN, UNK
  5. ADVAIR [Concomitant]
     Dosage: UNK UKN, UNK
  6. ALBUTEROL [Concomitant]
     Dosage: UNK UKN, UNK
  7. CEFTAZIDIME [Concomitant]
     Dosage: UNK UKN, UNK
  8. HYPERTONIC SALINE SOLUTION [Concomitant]
     Dosage: UNK UKN, UNK
  9. MULTI-VIT [Concomitant]
     Dosage: UNK UKN, UNK

REACTIONS (2)
  - Stenotrophomonas infection [Unknown]
  - Drug administered to patient of inappropriate age [Unknown]
